FAERS Safety Report 9152716 (Version 2)
Quarter: 2013Q4

REPORT INFORMATION
  Report Type: Spontaneous
  Country: IT (occurrence: IT)
  Receive Date: 20130308
  Receipt Date: 20131024
  Transmission Date: 20140711
  Serious: Yes (Hospitalization)
  Sender: FDA-Public Use
  Company Number: IT-MERCK-1303ITA000892

PATIENT
  Age: 62 Year
  Sex: Male

DRUGS (6)
  1. RIBAVIRIN [Suspect]
     Indication: CHRONIC HEPATITIS C
     Dosage: TOTAL DAILY DOSAGE 1000 MG
     Route: 048
     Dates: start: 20121008, end: 20121108
  2. RIBAVIRIN [Suspect]
     Dosage: TOTAL DAILY DOSE: 800 MG
     Route: 048
     Dates: start: 20121108, end: 20121210
  3. RIBAVIRIN [Suspect]
     Dosage: TOTAL DAILY DOSE 600 MG
     Route: 048
     Dates: start: 20121210, end: 201302
  4. RIBAVIRIN [Suspect]
     Dosage: TOTAL DAILY DOSE: 600 MG
     Route: 048
     Dates: start: 201302
  5. BOCEPREVIR [Suspect]
     Indication: CHRONIC HEPATITIS C
     Dosage: TOTAL DAILY DOSE: 2400 MG
     Route: 048
     Dates: start: 20121115
  6. PEGINTRON [Concomitant]
     Indication: CHRONIC HEPATITIS C
     Dosage: 100 MICROGRAM, QW
     Route: 058
     Dates: start: 20121008

REACTIONS (2)
  - Anaemia [Recovering/Resolving]
  - Haemoglobin decreased [Not Recovered/Not Resolved]
